FAERS Safety Report 16144799 (Version 1)
Quarter: 2019Q2

REPORT INFORMATION
  Report Type: Spontaneous
  Country: US (occurrence: US)
  Receive Date: 20190401
  Receipt Date: 20190401
  Transmission Date: 20190711
  Serious: Yes (Disabling)
  Sender: FDA-Public Use
  Company Number: None

PATIENT
  Age: 60 Year
  Sex: Male
  Weight: 70.2 kg

DRUGS (9)
  1. INSULIN [Concomitant]
     Active Substance: INSULIN NOS
  2. AMLODIPINE [Concomitant]
     Active Substance: AMLODIPINE BESYLATE
  3. CREON [Concomitant]
     Active Substance: PANCRELIPASE AMYLASE\PANCRELIPASE LIPASE\PANCRELIPASE PROTEASE
  4. TUMERIC [Concomitant]
     Active Substance: HERBALS\TURMERIC
  5. METHOTREXATE. [Concomitant]
     Active Substance: METHOTREXATE
  6. FOLIC ACID. [Concomitant]
     Active Substance: FOLIC ACID
  7. GABAPENTIN. [Concomitant]
     Active Substance: GABAPENTIN
  8. CINNAMON. [Concomitant]
     Active Substance: CINNAMON
  9. OPDIVO [Suspect]
     Active Substance: NIVOLUMAB
     Indication: RENAL CELL CARCINOMA STAGE IV
     Dosage: ?          OTHER FREQUENCY:EVERY TWO WEEKS;?
     Route: 042
     Dates: start: 20180201, end: 20180912

REACTIONS (7)
  - Arthralgia [None]
  - Peripheral swelling [None]
  - Disability [None]
  - Muscular weakness [None]
  - Impaired work ability [None]
  - Myalgia [None]
  - Muscle atrophy [None]

NARRATIVE: CASE EVENT DATE: 20180901
